FAERS Safety Report 24042141 (Version 2)
Quarter: 2024Q3

REPORT INFORMATION
  Report Type: Spontaneous
  Country: BR (occurrence: BR)
  Receive Date: 20240702
  Receipt Date: 20240724
  Transmission Date: 20241016
  Serious: Yes (Hospitalization, Other)
  Sender: PFIZER
  Company Number: BR-PFIZER INC-202400203381

PATIENT
  Age: 75 Year
  Sex: Female
  Weight: 46.8 kg

DRUGS (12)
  1. RUXIENCE [Suspect]
     Active Substance: RITUXIMAB-PVVR
     Indication: Chronic lymphocytic leukaemia
     Dosage: 500 MG, 1X PER DAY
     Dates: start: 20240622, end: 20240622
  2. RUXIENCE [Suspect]
     Active Substance: RITUXIMAB-PVVR
     Dosage: 500 MG, 1X/DAY
     Route: 042
     Dates: start: 20240712, end: 20240712
  3. LOSARTAN [Concomitant]
     Active Substance: LOSARTAN
     Indication: Hypertension
     Dosage: 50MG, 1X PER DAY
     Route: 048
  4. HYDROCHLOROTHIAZIDE [Concomitant]
     Active Substance: HYDROCHLOROTHIAZIDE
     Indication: Hypertension
     Dosage: 25MG, 1 X PER DAY PRE-CHEMOTHERAPY
     Route: 048
  5. ACETAMINOPHEN [Concomitant]
     Active Substance: ACETAMINOPHEN
     Dosage: 750 MG, PRE-CHEMOTHERAPY
     Route: 048
     Dates: start: 20240622, end: 20240622
  6. ACETAMINOPHEN [Concomitant]
     Active Substance: ACETAMINOPHEN
     Dosage: 750 MG, PRE-CHEMOTHERAPY
     Route: 048
     Dates: start: 20240712, end: 20240712
  7. DIPHENHYDRAMINE [Concomitant]
     Active Substance: DIPHENHYDRAMINE
     Indication: Chronic lymphocytic leukaemia
     Dosage: 50 MG, PRE-CHEMOTHERAPY
     Route: 042
     Dates: start: 20240622, end: 20240622
  8. DIPHENHYDRAMINE [Concomitant]
     Active Substance: DIPHENHYDRAMINE
     Dosage: 50 MG, PRE-CHEMOTHERAPY
     Route: 042
     Dates: start: 20240712, end: 20240712
  9. HYDROCORTISONE [Concomitant]
     Active Substance: HYDROCORTISONE\HYDROCORTISONE ACETATE
     Indication: Hypertension
     Dosage: 100 MG, CYCLIC PRE-CHEMOTHERAPY
     Route: 042
     Dates: start: 20240622, end: 20240622
  10. HYDROCORTISONE [Concomitant]
     Active Substance: HYDROCORTISONE\HYDROCORTISONE ACETATE
     Dosage: 100 MG, PRE-CHEMOTHERAPY
     Route: 042
     Dates: start: 20240712, end: 20240712
  11. AMLODIPINE BESYLATE [Concomitant]
     Active Substance: AMLODIPINE BESYLATE
     Indication: Hypertension
     Dosage: 5 MG, 2X/DAY PRE-CHEMOTHERAPY
  12. HYDRALAZINE [Suspect]
     Active Substance: HYDRALAZINE HYDROCHLORIDE
     Indication: Hypertension
     Dosage: 25 MG, 3X/DAY PRE-CHEMOTHERAPY
     Route: 048

REACTIONS (10)
  - Renal impairment [Not Recovered/Not Resolved]
  - Creatinine renal clearance decreased [Unknown]
  - Tremor [Recovered/Resolved]
  - Tachycardia [Recovered/Resolved]
  - Heart rate increased [Recovered/Resolved]
  - Infusion related reaction [Unknown]
  - Hypotension [Recovered/Resolved]
  - Chills [Recovered/Resolved]
  - Hypertension [Recovered/Resolved]
  - Pyrexia [Recovered/Resolved]

NARRATIVE: CASE EVENT DATE: 20240712
